FAERS Safety Report 6609051-X (Version None)
Quarter: 2010Q1

REPORT INFORMATION
  Report Type: 
  Country: None (occurrence: None)
  Receive Date: 20100301
  Receipt Date: 20100218
  Transmission Date: 20100710
  Serious: Yes (Hospitalization)
  Sender: FDA-Public Use
  Company Number: DE-ELI_LILLY_AND_COMPANY-DE201002005259

PATIENT
  Age: 55 Year
  Sex: Male

DRUGS (5)
  1. ZYPREXA [Suspect]
     Indication: SCHIZOAFFECTIVE DISORDER
     Dosage: 15 MG, UNK
     Route: 048
     Dates: start: 20000101, end: 20060201
  2. ZYPREXA [Suspect]
     Dosage: 20 MG, UNK
     Route: 048
     Dates: start: 20060201
  3. NEUROCIL [Concomitant]
     Dosage: 25 MG, UNK
     Route: 048
     Dates: start: 20090401, end: 20100117
  4. HALOPERIDOL DECANOATE [Concomitant]
     Dosage: 150 MG, EVERY THREE WEEKS
     Route: 030
     Dates: start: 19920101, end: 20100112
  5. CONVULEX [Concomitant]
     Dosage: 2000 MG, UNK
     Route: 048
     Dates: start: 20071001

REACTIONS (2)
  - INCONTINENCE [None]
  - PARKINSONISM [None]
